FAERS Safety Report 6544329-X (Version None)
Quarter: 2010Q1

REPORT INFORMATION
  Report Type: 
  Country: None (occurrence: None)
  Receive Date: 20100120
  Receipt Date: 20100120
  Transmission Date: 20100710
  Serious: No
  Sender: FDA-Public Use
  Company Number: None

PATIENT
  Age: 47 Year
  Sex: Female
  Weight: 70.7611 kg

DRUGS (1)
  1. LEVAQUIN [Suspect]
     Indication: URINARY TRACT INFECTION
     Dosage: 1 TABLET DAILY ONCE A DAY PO
     Route: 048
     Dates: start: 20100114, end: 20100114

REACTIONS (13)
  - ARTHRALGIA [None]
  - BLOOD PRESSURE DECREASED [None]
  - COLD SWEAT [None]
  - DYSSTASIA [None]
  - EYE DISORDER [None]
  - HEADACHE [None]
  - MUSCLE STRAIN [None]
  - NAUSEA [None]
  - NECK PAIN [None]
  - OCULAR HYPERAEMIA [None]
  - OCULAR VASCULAR DISORDER [None]
  - PAIN IN EXTREMITY [None]
  - PRESYNCOPE [None]
